FAERS Safety Report 25597906 (Version 1)
Quarter: 2025Q3

REPORT INFORMATION
  Report Type: Spontaneous
  Country: CA (occurrence: CA)
  Receive Date: 20250723
  Receipt Date: 20250723
  Transmission Date: 20251020
  Serious: Yes (Other)
  Sender: EISAI
  Company Number: CA-Eisai-EC-2025-193292

PATIENT
  Age: 80 Year
  Sex: Female

DRUGS (1)
  1. LENVIMA [Suspect]
     Active Substance: LENVATINIB
     Indication: Metastatic renal cell carcinoma

REACTIONS (2)
  - Urinary tract infection [Recovered/Resolved]
  - Intentional dose omission [Recovered/Resolved]
